FAERS Safety Report 4893540-2 (Version None)
Quarter: 2006Q1

REPORT INFORMATION
  Report Type: 
  Country: None (occurrence: None)
  Receive Date: 20060127
  Receipt Date: 20050513
  Transmission Date: 20060701
  Serious: Yes (Hospitalization)
  Sender: FDA-Public Use
  Company Number: 2005UW08185

PATIENT
  Age: 16 Year
  Sex: Female
  Weight: 75 kg

DRUGS (3)
  1. SEROQUEL [Suspect]
     Indication: BIPOLAR DISORDER
     Route: 048
  2. STUDY PROCEDURE [Suspect]
  3. SEROQUEL [Concomitant]
     Route: 048
     Dates: end: 20050416

REACTIONS (1)
  - BIPOLAR DISORDER [None]
